FAERS Safety Report 24045122 (Version 1)
Quarter: 2024Q3

REPORT INFORMATION
  Report Type: Spontaneous
  Country: GR (occurrence: GR)
  Receive Date: 20240703
  Receipt Date: 20240703
  Transmission Date: 20241016
  Serious: Yes (Other)
  Sender: MYLAN
  Company Number: GR-MYLANLABS-2024M1061888

PATIENT
  Age: 78 Year
  Sex: Male

DRUGS (10)
  1. EPINEPHRINE [Suspect]
     Active Substance: EPINEPHRINE
     Indication: Hypotension
     Dosage: 1 MILLIGRAM
     Route: 042
  2. EPINEPHRINE [Suspect]
     Active Substance: EPINEPHRINE
     Indication: Sinus bradycardia
  3. METFORMIN [Concomitant]
     Active Substance: METFORMIN HYDROCHLORIDE
     Indication: Type 2 diabetes mellitus
     Dosage: UNK
     Route: 048
  4. EPHEDRINE [Concomitant]
     Active Substance: EPHEDRINE
     Indication: Sinus bradycardia
     Dosage: 5 MILLIGRAM (CONSECUTIVE BOLUSES OVER A PERIOD OF 30S)
     Route: 065
  5. EPHEDRINE [Concomitant]
     Active Substance: EPHEDRINE
     Indication: Hypotension
  6. PHENYLEPHRINE [Concomitant]
     Active Substance: PHENYLEPHRINE HYDROCHLORIDE
     Indication: Sinus bradycardia
     Dosage: 1 MILLIGRAM (CONSECUTIVE BOLUSES OVER A PERIOD OF 30S)
     Route: 065
  7. PHENYLEPHRINE [Concomitant]
     Active Substance: PHENYLEPHRINE HYDROCHLORIDE
     Indication: Hypotension
  8. LIDOCAINE [Concomitant]
     Active Substance: LIDOCAINE
     Indication: Local anaesthesia
     Dosage: 5 MILLILITER
     Route: 065
  9. ROPIVACAINE [Concomitant]
     Active Substance: ROPIVACAINE
     Indication: Epidural analgesia
     Dosage: 1.9 MILLILITER
     Route: 008
  10. FENTANYL [Concomitant]
     Active Substance: FENTANYL\FENTANYL CITRATE
     Indication: Epidural analgesia
     Dosage: 0.2 MILLILITER
     Route: 008

REACTIONS (1)
  - Hypertension [Recovered/Resolved]
